FAERS Safety Report 8201349 (Version 2)
Quarter: 2012Q4

REPORT INFORMATION
  Report Type: 
  Country: EC (occurrence: EC)
  Receive Date: 20111026
  Receipt Date: 20121022
  Transmission Date: 20130627
  Serious: Yes (Hospitalization)
  Sender: FDA-Public Use
  Company Number: PHHY2011EC92924

PATIENT
  Age: 82 Year
  Sex: Female

DRUGS (5)
  1. ACLASTA [Suspect]
     Indication: OSTEOPOROSIS
     Dosage: 5 mg/100 ml STAT
     Route: 042
     Dates: start: 20081102
  2. ACLASTA [Suspect]
     Dosage: 5 mg/ 100ml
     Route: 042
     Dates: start: 20111102
  3. EUTHYROX [Concomitant]
  4. ANALGAN [Concomitant]
  5. PRADAXA [Concomitant]

REACTIONS (1)
  - Fracture [Recovering/Resolving]
